FAERS Safety Report 17529208 (Version 1)
Quarter: 2020Q1

REPORT INFORMATION
  Report Type: Spontaneous
  Country: DE (occurrence: DE)
  Receive Date: 20200311
  Receipt Date: 20200311
  Transmission Date: 20200409
  Serious: Yes (Other)
  Sender: FDA-Public Use
  Company Number: DE-BAYER-2020-037639

PATIENT
  Age: 29 Year
  Sex: Female
  Weight: 80 kg

DRUGS (1)
  1. KYLEENA [Suspect]
     Active Substance: LEVONORGESTREL
     Indication: CONTRACEPTION
     Route: 015
     Dates: start: 20170914, end: 20191014

REACTIONS (14)
  - Adverse event [Not Recovered/Not Resolved]
  - Muscular weakness [Unknown]
  - Suicidal ideation [Unknown]
  - Neck pain [Not Recovered/Not Resolved]
  - Paraesthesia [Unknown]
  - Fear [Not Recovered/Not Resolved]
  - Hypoaesthesia [Unknown]
  - Dizziness [Unknown]
  - Palpitations [Not Recovered/Not Resolved]
  - Ill-defined disorder [Not Recovered/Not Resolved]
  - Panic reaction [Not Recovered/Not Resolved]
  - Helplessness [Unknown]
  - Cardiovascular disorder [Unknown]
  - Headache [Unknown]

NARRATIVE: CASE EVENT DATE: 20190601
